FAERS Safety Report 5041388-0 (Version None)
Quarter: 2006Q2

REPORT INFORMATION
  Report Type: 
  Country: None (occurrence: None)
  Receive Date: 20060626
  Receipt Date: 20060614
  Transmission Date: 20061013
  Serious: No
  Sender: FDA-Public Use
  Company Number: 226317

PATIENT
  Sex: Female

DRUGS (2)
  1. AVASTIN [Suspect]
     Indication: BREAST CANCER METASTATIC
     Dosage: 10  MG/KG, Q2W, INTRAVENOUS
     Route: 042
  2. ABRAXANE (PACLITAXEL) [Concomitant]

REACTIONS (2)
  - ASCITES [None]
  - PLEURAL EFFUSION [None]
